FAERS Safety Report 26022829 (Version 1)
Quarter: 2025Q4

REPORT INFORMATION
  Report Type: Spontaneous
  Country: EU (occurrence: EU)
  Receive Date: 20251110
  Receipt Date: 20251110
  Transmission Date: 20260117
  Serious: Yes (Death, Other)
  Sender: MERCK SHARP & DOHME LLC
  Company Number: None

PATIENT
  Age: 53 Year
  Sex: Male
  Weight: 99 kg

DRUGS (3)
  1. KEYTRUDA [Suspect]
     Active Substance: PEMBROLIZUMAB
     Indication: Lung adenocarcinoma
     Dosage: TIME INTERVAL: TOTAL
     Route: 042
     Dates: start: 20250917, end: 20250917
  2. CARBOPLATIN [Suspect]
     Active Substance: CARBOPLATIN
     Indication: Lung adenocarcinoma
     Dosage: TIME INTERVAL: TOTAL
     Route: 042
     Dates: start: 20250917, end: 20250917
  3. PEMETREXED [Suspect]
     Active Substance: PEMETREXED
     Indication: Lung adenocarcinoma
     Route: 042
     Dates: start: 20250917, end: 20250917

REACTIONS (3)
  - Haemorrhagic diathesis [Fatal]
  - Fatigue [Not Recovered/Not Resolved]
  - Bicytopenia [Fatal]

NARRATIVE: CASE EVENT DATE: 20250901
